FAERS Safety Report 25437388 (Version 1)
Quarter: 2025Q2

REPORT INFORMATION
  Report Type: Spontaneous
  Country: US (occurrence: US)
  Receive Date: 20250616
  Receipt Date: 20250616
  Transmission Date: 20250716
  Serious: No
  Sender: SANOFI AVENTIS
  Company Number: US-SA-2025SA166033

PATIENT
  Age: 48 Year
  Sex: Female
  Weight: 81.633 kg

DRUGS (1)
  1. KEVZARA [Suspect]
     Active Substance: SARILUMAB
     Indication: Rheumatoid arthritis
     Dates: start: 20250423

REACTIONS (4)
  - Injection site inflammation [Unknown]
  - Injection site pain [Unknown]
  - Pyrexia [Unknown]
  - Injection site erythema [Unknown]

NARRATIVE: CASE EVENT DATE: 20250519
